FAERS Safety Report 15160248 (Version 3)
Quarter: 2018Q3

REPORT INFORMATION
  Report Type: Spontaneous
  Country: RU (occurrence: RU)
  Receive Date: 20180718
  Receipt Date: 20180724
  Transmission Date: 20181010
  Serious: Yes (Hospitalization, Other)
  Sender: FDA-Public Use
  Company Number: RU-ASTRAZENECA-2017SE47936

PATIENT
  Age: 70 Year
  Sex: Male
  Weight: 92 kg

DRUGS (11)
  1. BRILINTA [Suspect]
     Active Substance: TICAGRELOR
     Indication: MYOCARDIAL INFARCTION
     Route: 048
     Dates: start: 201612
  2. CO?RENITEC [Concomitant]
     Active Substance: ENALAPRIL\HYDROCHLOROTHIAZIDE
  3. METFORMIN [Concomitant]
     Active Substance: METFORMIN HYDROCHLORIDE
  4. NIFEDIPINE. [Concomitant]
     Active Substance: NIFEDIPINE
  5. CARDIOMAGNYL [Concomitant]
     Active Substance: ASPIRIN\MAGNESIUM HYDROXIDE
  6. TORASEMIDE [Concomitant]
     Active Substance: TORSEMIDE
  7. BETALOC ZOK [Suspect]
     Active Substance: METOPROLOL SUCCINATE
     Dosage: 50.0MG UNKNOWN
     Route: 048
     Dates: start: 201612
  8. METOPROLOL. [Concomitant]
     Active Substance: METOPROLOL
  9. SPIRONOLACTONE. [Concomitant]
     Active Substance: SPIRONOLACTONE
  10. DIABETON MB [Concomitant]
     Active Substance: GLICLAZIDE
  11. ATORVASTATIN [Concomitant]
     Active Substance: ATORVASTATIN

REACTIONS (10)
  - Myocardial infarction [Recovered/Resolved]
  - Constipation [Recovered/Resolved]
  - Heavy exposure to ultraviolet light [Unknown]
  - Pain in extremity [Not Recovered/Not Resolved]
  - Vomiting [Recovered/Resolved]
  - Contusion [Recovered/Resolved]
  - Blood pressure increased [Not Recovered/Not Resolved]
  - Pulmonary oedema [Recovered/Resolved]
  - Haemoglobin decreased [Recovered/Resolved]
  - Musculoskeletal pain [Not Recovered/Not Resolved]

NARRATIVE: CASE EVENT DATE: 20170501
